FAERS Safety Report 19962217 (Version 1)
Quarter: 2021Q4

REPORT INFORMATION
  Report Type: Spontaneous
  Country: FR (occurrence: FR)
  Receive Date: 20211018
  Receipt Date: 20211018
  Transmission Date: 20220303
  Serious: Yes (Hospitalization)
  Sender: FDA-Public Use
  Company Number: FR-ORION CORPORATION ORION PHARMA-TREX2021-0082

PATIENT
  Age: 75 Year
  Sex: Male

DRUGS (3)
  1. METHOTREXATE [Suspect]
     Active Substance: METHOTREXATE
     Indication: Rheumatic disorder
     Route: 048
     Dates: start: 20210226, end: 20210517
  2. FOLIC ACID [Concomitant]
     Active Substance: FOLIC ACID
     Dosage: STRENGTH: 5 MG
     Route: 048
     Dates: start: 20210226, end: 20210517
  3. PREDNISONE [Concomitant]
     Active Substance: PREDNISONE
     Dosage: STRENGTH: 20 MG
     Route: 048

REACTIONS (1)
  - Squamous cell carcinoma of the parotid gland [Not Recovered/Not Resolved]

NARRATIVE: CASE EVENT DATE: 20210101
